FAERS Safety Report 26202851 (Version 1)
Quarter: 2025Q4

REPORT INFORMATION
  Report Type: Spontaneous
  Country: EU (occurrence: EU)
  Receive Date: 20251226
  Receipt Date: 20251226
  Transmission Date: 20260118
  Serious: Yes (Hospitalization, Other)
  Sender: AUROBINDO
  Company Number: EU-AFSSAPS-ST2025001359

PATIENT
  Age: 63 Year
  Sex: Male
  Weight: 108 kg

DRUGS (17)
  1. CLARITHROMYCIN [Suspect]
     Active Substance: CLARITHROMYCIN
     Indication: Atypical mycobacterial infection
     Dosage: 1000 MILLIGRAM, ONCE A DAY
     Route: 061
     Dates: start: 20160702, end: 20160718
  2. RIFABUTIN [Suspect]
     Active Substance: RIFABUTIN
     Indication: Atypical mycobacterial infection
     Dosage: 300 MILLIGRAM, ONCE A DAY
     Route: 061
     Dates: start: 20160702, end: 20160705
  3. ETHAMBUTOL HYDROCHLORIDE [Suspect]
     Active Substance: ETHAMBUTOL HYDROCHLORIDE
     Indication: Atypical mycobacterial infection
     Dosage: 1500 MILLIGRAM, ONCE A DAY
     Route: 061
     Dates: start: 20160702, end: 20160705
  4. ETHAMBUTOL HYDROCHLORIDE [Suspect]
     Active Substance: ETHAMBUTOL HYDROCHLORIDE
     Dosage: 1500 MILLIGRAM, ONCE A DAY
     Route: 061
     Dates: start: 20160711, end: 20160717
  5. DIGOXIN [Suspect]
     Active Substance: DIGOXIN
     Indication: Atrial fibrillation
     Dosage: 450 MILLIGRAM, ONCE A DAY
     Route: 061
     Dates: start: 20160630, end: 20160717
  6. VALGANCICLOVIR HYDROCHLORIDE [Suspect]
     Active Substance: VALGANCICLOVIR HYDROCHLORIDE
     Indication: Cytomegalovirus infection
     Dosage: 0.25 MILLIGRAM, ONCE A DAY
     Route: 061
     Dates: start: 20160705, end: 20160717
  7. BISOPROLOL FUMARATE [Concomitant]
     Active Substance: BISOPROLOL FUMARATE
     Indication: Product used for unknown indication
     Dosage: UNK
     Route: 065
  8. RAMIPRIL [Concomitant]
     Active Substance: RAMIPRIL
     Indication: Product used for unknown indication
     Dosage: UNK
     Route: 065
  9. INSPRA [Concomitant]
     Active Substance: EPLERENONE
     Indication: Product used for unknown indication
     Dosage: UNK
     Route: 065
  10. FUROSEMIDE [Concomitant]
     Active Substance: FUROSEMIDE
     Indication: Product used for unknown indication
     Dosage: UNK
     Route: 065
  11. POTASSIUM CHLORIDE [Concomitant]
     Active Substance: POTASSIUM CHLORIDE
     Indication: Product used for unknown indication
     Dosage: UNK
     Route: 065
  12. LOVENOX [Concomitant]
     Active Substance: ENOXAPARIN SODIUM
     Indication: Product used for unknown indication
     Dosage: UNK
     Route: 065
  13. WARFARIN SODIUM [Concomitant]
     Active Substance: WARFARIN SODIUM
     Indication: Product used for unknown indication
     Dosage: UNK
     Route: 065
  14. TRUVADA [Concomitant]
     Active Substance: EMTRICITABINE\TENOFOVIR DISOPROXIL FUMARATE
     Indication: Product used for unknown indication
     Dosage: UNK
     Route: 065
  15. TIVICAY [Concomitant]
     Active Substance: DOLUTEGRAVIR SODIUM
     Indication: Product used for unknown indication
     Dosage: UNK
     Route: 065
  16. VALGANCICLOVIR [Concomitant]
     Active Substance: VALGANCICLOVIR
     Indication: Product used for unknown indication
     Dosage: UNK
     Route: 065
  17. BACTRIM [Concomitant]
     Active Substance: SULFAMETHOXAZOLE\TRIMETHOPRIM
     Indication: Product used for unknown indication
     Dosage: UNK
     Route: 065

REACTIONS (1)
  - Pancytopenia [Recovered/Resolved]

NARRATIVE: CASE EVENT DATE: 20160714
